FAERS Safety Report 16522342 (Version 1)
Quarter: 2019Q3

REPORT INFORMATION
  Report Type: Spontaneous
  Country: US (occurrence: US)
  Receive Date: 20190522
  Receipt Date: 20190522
  Transmission Date: 20191004
  Serious: Yes (Hospitalization)
  Sender: FDA-Public Use
  Company Number: None

PATIENT
  Age: 66 Year
  Sex: Male
  Weight: 82 kg

DRUGS (5)
  1. DOXAZOSIN [Concomitant]
     Active Substance: DOXAZOSIN MESYLATE
  2. SILDENAFIL. [Concomitant]
     Active Substance: SILDENAFIL
  3. CASODEX [Suspect]
     Active Substance: BICALUTAMIDE
     Dates: end: 20190429
  4. LISINOPRIL. [Concomitant]
     Active Substance: LISINOPRIL
  5. ASPIRIN. [Concomitant]
     Active Substance: ASPIRIN

REACTIONS (2)
  - Coronary artery stenosis [None]
  - Myocardial infarction [None]

NARRATIVE: CASE EVENT DATE: 20190212
